FAERS Safety Report 8015718-1 (Version None)
Quarter: 2011Q4

REPORT INFORMATION
  Report Type: 
  Country: None (occurrence: None)
  Receive Date: 20111230
  Receipt Date: 20111220
  Transmission Date: 20120403
  Serious: Yes (Hospitalization, Other)
  Sender: FDA-Public Use
  Company Number: PHHY2011CA110166

PATIENT
  Sex: Female

DRUGS (11)
  1. VITAMIN D [Concomitant]
  2. SENOKOT [Concomitant]
  3. SOFLAX [Concomitant]
  4. DOMPERIDONE [Concomitant]
  5. MIRTAZAPINE [Concomitant]
  6. LEVOTHYROXINE SODIUM [Concomitant]
  7. LEVOCARB [Concomitant]
     Dosage: 100/20 MG
  8. CLOZARIL [Suspect]
     Indication: PSYCHOTIC DISORDER
     Dosage: 25 MG, UNK
     Route: 048
     Dates: start: 20100416
  9. LACTULOSE [Concomitant]
  10. CRESTOR [Concomitant]
  11. ARICEPT [Concomitant]

REACTIONS (3)
  - HYPOPHAGIA [None]
  - PARKINSON'S DISEASE [None]
  - URINARY TRACT INFECTION [None]
